FAERS Safety Report 6765311-3 (Version None)
Quarter: 2010Q2

REPORT INFORMATION
  Report Type: 
  Country: None (occurrence: None)
  Receive Date: 20100610
  Receipt Date: 20100610
  Transmission Date: 20101027
  Serious: Yes (Hospitalization)
  Sender: FDA-Public Use
  Company Number: None

PATIENT
  Age: 55 Year
  Sex: Male

DRUGS (1)
  1. LITHIUM [Suspect]
     Indication: AFFECTIVE DISORDER
     Dosage: 900 MG AT BEDTIME PO
     Route: 048
     Dates: start: 20100325, end: 20100607

REACTIONS (2)
  - ATAXIA [None]
  - DRUG TOXICITY [None]
